FAERS Safety Report 10650471 (Version 2)
Quarter: 2015Q4

REPORT INFORMATION
  Report Type: Spontaneous
  Country: US (occurrence: US)
  Receive Date: 20141213
  Receipt Date: 20151204
  Transmission Date: 20160304
  Serious: No
  Sender: FDA-Public Use
  Company Number: US-BAUSCH-BL-2014-004329

PATIENT
  Age: 62 Year
  Sex: Female

DRUGS (5)
  1. XENAZINE [Suspect]
     Active Substance: TETRABENAZINE
     Dosage: 1 TABLET EVERY MORNING AND EVERY AFTERNOON
     Route: 048
     Dates: start: 201412
  2. XENAZINE [Suspect]
     Active Substance: TETRABENAZINE
     Indication: HUNTINGTON^S DISEASE
     Dosage: 1 TABLET EVERY MORNING AND EVERY AFTERNOON
     Route: 048
     Dates: start: 20140814, end: 2014
  3. XENAZINE [Suspect]
     Active Substance: TETRABENAZINE
     Route: 048
     Dates: start: 2014, end: 2014
  4. XENAZINE [Suspect]
     Active Substance: TETRABENAZINE
     Dosage: 1.5 TABLETS EVERY MORNING AND 1 TABLET EVERY EVENING
     Route: 048
     Dates: start: 201412, end: 201412
  5. XENAZINE [Suspect]
     Active Substance: TETRABENAZINE
     Route: 048
     Dates: start: 201409, end: 2014

REACTIONS (7)
  - Fatigue [Unknown]
  - Posture abnormal [Unknown]
  - Restless legs syndrome [Unknown]
  - Somnolence [Unknown]
  - Drooling [Unknown]
  - Oral discomfort [Unknown]
  - Treatment noncompliance [Unknown]

NARRATIVE: CASE EVENT DATE: 2014
